FAERS Safety Report 5810432-2 (Version None)
Quarter: 2008Q3

REPORT INFORMATION
  Report Type: 
  Country: None (occurrence: None)
  Receive Date: 20080715
  Receipt Date: 20080708
  Transmission Date: 20090109
  Serious: Yes (Hospitalization, Other)
  Sender: FDA-Public Use
  Company Number: AU-ABBOTT-08P-008-0451744-00

PATIENT
  Sex: Male

DRUGS (2)
  1. E.E.S. [Suspect]
     Indication: RESPIRATORY TRACT INFECTION
     Dates: start: 20070801, end: 20070801
  2. DOSULEPIN [Concomitant]
     Indication: DRUG USE FOR UNKNOWN INDICATION

REACTIONS (7)
  - ABDOMINAL PAIN [None]
  - COLON CANCER STAGE II [None]
  - DIARRHOEA [None]
  - INFLAMMATION [None]
  - INTESTINAL OBSTRUCTION [None]
  - NAUSEA [None]
  - VOMITING [None]
